FAERS Safety Report 9220991 (Version 2)
Quarter: 2013Q2

REPORT INFORMATION
  Report Type: Spontaneous
  Country: JP (occurrence: JP)
  Receive Date: 20130409
  Receipt Date: 20130422
  Transmission Date: 20140414
  Serious: Yes (Hospitalization, Other)
  Sender: FDA-Public Use
  Company Number: PHHY2013JP031038

PATIENT
  Age: 5 Year
  Sex: Female

DRUGS (6)
  1. NEORAL [Suspect]
     Indication: KAWASAKI^S DISEASE
     Route: 048
  2. PREDNISOLONE [Suspect]
     Dosage: UNK
     Dates: start: 20121108
  3. ACETYLSALICYLIC ACID [Suspect]
     Dosage: UNK
     Route: 048
     Dates: start: 20121108
  4. VENILON I [Suspect]
     Dosage: UNK
     Route: 042
     Dates: start: 20121108
  5. FAMOTIDINE [Concomitant]
  6. ULINASTATIN [Concomitant]
     Indication: KAWASAKI^S DISEASE

REACTIONS (3)
  - Gastric haemorrhage [Recovered/Resolved]
  - Melaena [Unknown]
  - Anaemia [Unknown]
